FAERS Safety Report 19569916 (Version 3)
Quarter: 2022Q1

REPORT INFORMATION
  Report Type: Spontaneous
  Country: AR (occurrence: AR)
  Receive Date: 20210716
  Receipt Date: 20220222
  Transmission Date: 20220423
  Serious: Yes (Other)
  Sender: FDA-Public Use
  Company Number: AR-PFIZER INC-2021840694

PATIENT
  Age: 79 Year
  Sex: Female

DRUGS (1)
  1. XELJANZ [Suspect]
     Active Substance: TOFACITINIB CITRATE
     Indication: Psoriatic arthropathy
     Dosage: 5 MG, 2X/DAY
     Dates: start: 20190730

REACTIONS (8)
  - Paralysis [Unknown]
  - Fall [Unknown]
  - Gait inability [Unknown]
  - Dysstasia [Unknown]
  - Swelling [Unknown]
  - Anaemia [Unknown]
  - Blood pressure decreased [Unknown]
  - Inflammation [Unknown]
